FAERS Safety Report 7115057-7 (Version None)
Quarter: 2010Q4

REPORT INFORMATION
  Report Type: 
  Country: None (occurrence: None)
  Receive Date: 20101122
  Receipt Date: 20101102
  Transmission Date: 20110411
  Serious: No
  Sender: FDA-Public Use
  Company Number: US-BAYER-201038976NA

PATIENT
  Age: 43 Year
  Sex: Female

DRUGS (1)
  1. MAGNEVIST [Suspect]
     Indication: NUCLEAR MAGNETIC RESONANCE IMAGING BRAIN
     Dosage: TOTAL DAILY DOSE: 100 ML
     Route: 042
     Dates: start: 20101102, end: 20101102

REACTIONS (3)
  - PRURITUS [None]
  - RHINORRHOEA [None]
  - SNEEZING [None]
